FAERS Safety Report 7672819-5 (Version None)
Quarter: 2011Q3

REPORT INFORMATION
  Report Type: 
  Country: None (occurrence: None)
  Receive Date: 20110809
  Receipt Date: 20110801
  Transmission Date: 20111222
  Serious: Yes (Hospitalization, Other)
  Sender: FDA-Public Use
  Company Number: US-BAYER-2011-070055

PATIENT
  Age: 38 Year
  Sex: Female
  Weight: 82 kg

DRUGS (5)
  1. LISINOPRIL [Concomitant]
     Indication: HYPERTENSION
     Dosage: 20 MG, QD
     Dates: start: 20010101
  2. DROSPIRENONE AND ETHINYL ESTRADIOL [Suspect]
  3. POTASSIUM [Concomitant]
     Dosage: UNK
     Dates: start: 20010101
  4. YAZ [Suspect]
     Indication: ORAL CONTRACEPTION
     Dosage: UNK
     Dates: start: 20080101
  5. ACIPHEX [Concomitant]
     Dosage: 20 MG, QD
     Dates: start: 20010101

REACTIONS (6)
  - MENTAL DISORDER [None]
  - DIARRHOEA [None]
  - CHOLECYSTECTOMY [None]
  - CHOLELITHIASIS [None]
  - CHEST PAIN [None]
  - CHOLECYSTITIS ACUTE [None]
